FAERS Safety Report 10298320 (Version 1)
Quarter: 2014Q3

REPORT INFORMATION
  Report Type: Spontaneous
  Country: CO (occurrence: CO)
  Receive Date: 20140711
  Receipt Date: 20140711
  Transmission Date: 20150326
  Serious: Yes (Death, Other)
  Sender: FDA-Public Use
  Company Number: PHHY2014CO084804

PATIENT
  Age: 44 Year
  Sex: Male

DRUGS (1)
  1. NEORAL [Suspect]
     Active Substance: CYCLOSPORINE
     Indication: RENAL TRANSPLANT
     Dosage: UNK ,50Y 25 MG
     Route: 048

REACTIONS (3)
  - Death [Fatal]
  - Blood glucose increased [Unknown]
  - Pneumonia [Unknown]

NARRATIVE: CASE EVENT DATE: 20140530
